FAERS Safety Report 9679423 (Version 1)
Quarter: 2013Q4

REPORT INFORMATION
  Report Type: Spontaneous
  Country: US (occurrence: US)
  Receive Date: 20131109
  Receipt Date: 20131109
  Transmission Date: 20140711
  Serious: No
  Sender: FDA-Public Use
  Company Number: US-SANOFI-AVENTIS-2013SA042341

PATIENT
  Age: 61 Year
  Sex: Female

DRUGS (6)
  1. ALLEGRA-D, 24 HR [Suspect]
     Indication: HYPERSENSITIVITY
     Route: 048
     Dates: start: 20130419, end: 20130419
  2. PROZAC [Concomitant]
     Dosage: FREQUENCY - ONCE OR TWICE WEEKLY
  3. LYRICA [Concomitant]
     Dosage: FREQUENCY - ONCE OR TWICE WEEKLY
  4. ANTIHYPERTENSIVES [Concomitant]
  5. PERCOCET [Concomitant]
     Dosage: TAKES ONLY HALF A DOSE.
  6. THYROID THERAPY [Concomitant]

REACTIONS (3)
  - Ocular hyperaemia [Not Recovered/Not Resolved]
  - Feeling abnormal [Not Recovered/Not Resolved]
  - Fatigue [Not Recovered/Not Resolved]
